FAERS Safety Report 10159726 (Version 1)
Quarter: 2014Q2

REPORT INFORMATION
  Report Type: Spontaneous
  Country: SE (occurrence: SE)
  Receive Date: 20140508
  Receipt Date: 20140508
  Transmission Date: 20141212
  Serious: Yes (Hospitalization)
  Sender: FDA-Public Use
  Company Number: SE-ASTRAZENECA-2014SE29845

PATIENT
  Age: 39 Year
  Sex: Female

DRUGS (4)
  1. PULMICORT TURBUHALER [Suspect]
     Indication: HYPERSENSITIVITY
     Dosage: 200 OID
     Route: 055
     Dates: start: 199503, end: 2013
  2. PULMICORT TURBUHALER [Suspect]
     Indication: HYPERSENSITIVITY
     Route: 055
     Dates: start: 2013, end: 20131228
  3. BETAPRED [Concomitant]
  4. LAMOTRIGINE [Concomitant]

REACTIONS (11)
  - Asthma [Not Recovered/Not Resolved]
  - Muscle spasms [Not Recovered/Not Resolved]
  - Malaise [Not Recovered/Not Resolved]
  - Blister [Not Recovered/Not Resolved]
  - Mucosal pain [Not Recovered/Not Resolved]
  - Blood pressure decreased [Unknown]
  - Rash [Not Recovered/Not Resolved]
  - Hypersensitivity [Not Recovered/Not Resolved]
  - Burning sensation mucosal [Recovering/Resolving]
  - Flushing [Recovering/Resolving]
  - Speech disorder [Recovering/Resolving]
